FAERS Safety Report 4497288-8 (Version None)
Quarter: 2004Q3

REPORT INFORMATION
  Report Type: 
  Country: None (occurrence: None)
  Receive Date: 20040927
  Receipt Date: 20040721
  Transmission Date: 20050211
  Serious: No
  Sender: FDA-Public Use
  Company Number: USA040773293

PATIENT
  Age: 15 Year
  Sex: Female
  Weight: 42 kg

DRUGS (1)
  1. STRATTERA [Suspect]
     Indication: ATTENTION DEFICIT/HYPERACTIVITY DISORDER
     Dosage: 60 MG/1 IN THE EVENING
     Dates: start: 20030301

REACTIONS (3)
  - FATIGUE [None]
  - RESTLESSNESS [None]
  - SOMNOLENCE [None]
